FAERS Safety Report 5112895-7 (Version None)
Quarter: 2006Q3

REPORT INFORMATION
  Report Type: 
  Country: None (occurrence: None)
  Receive Date: 20060921
  Receipt Date: 20060921
  Transmission Date: 20061208
  Serious: No
  Sender: FDA-Public Use
  Company Number: None

PATIENT
  Sex: Male
  Weight: 94.3482 kg

DRUGS (2)
  1. ALDACTONE [Suspect]
     Indication: CARDIAC FAILURE CONGESTIVE
     Dosage: 25 MG PO DAILY
     Route: 048
  2. ALDACTONE [Suspect]
     Indication: HYPERTENSION
     Dosage: 25 MG PO DAILY
     Route: 048

REACTIONS (4)
  - HEADACHE [None]
  - NAUSEA [None]
  - PHARMACEUTICAL PRODUCT COMPLAINT [None]
  - RENAL PAIN [None]
